FAERS Safety Report 6710754-7 (Version None)
Quarter: 2010Q2

REPORT INFORMATION
  Report Type: 
  Country: None (occurrence: None)
  Receive Date: 20100504
  Receipt Date: 20100504
  Transmission Date: 20101027
  Serious: Yes (Life-Threatening, Hospitalization, Other)
  Sender: FDA-Public Use
  Company Number: None

PATIENT
  Sex: Female
  Weight: 71.2147 kg

DRUGS (2)
  1. LEXAPRO [Suspect]
     Indication: DEPRESSION
     Dosage: 10 MG ONCE DAILY PO
     Route: 048
     Dates: start: 20090924, end: 20100101
  2. LEXAPRO [Suspect]
     Indication: PAIN
     Dosage: 10 MG ONCE DAILY PO
     Route: 048
     Dates: start: 20090924, end: 20100101

REACTIONS (14)
  - ABNORMAL BEHAVIOUR [None]
  - ABNORMAL WEIGHT GAIN [None]
  - ATRIAL FIBRILLATION [None]
  - CEREBROVASCULAR ACCIDENT [None]
  - DIZZINESS [None]
  - DYSARTHRIA [None]
  - DYSPNOEA [None]
  - FALL [None]
  - FEELING ABNORMAL [None]
  - FLUID RETENTION [None]
  - GAIT DISTURBANCE [None]
  - HAEMORRHAGE [None]
  - PARAESTHESIA [None]
  - TRANSIENT ISCHAEMIC ATTACK [None]
